FAERS Safety Report 8170886 (Version 3)
Quarter: 2013Q2

REPORT INFORMATION
  Report Type: Report from Study
  Country: AU (occurrence: AU)
  Receive Date: 20111006
  Receipt Date: 20130502
  Transmission Date: 20140414
  Serious: Yes (Hospitalization)
  Sender: FDA-Public Use
  Company Number: AU-ELI_LILLY_AND_COMPANY-AU201109007232

PATIENT
  Age: 69 Year
  Sex: Male
  Weight: 67 kg

DRUGS (12)
  1. GEMCITABINE HYDROCHLORIDE [Suspect]
     Indication: NON-SMALL CELL LUNG CANCER STAGE IV
     Dosage: 1710 MG, 21 DAYS/CYCLE
     Route: 042
     Dates: start: 20110701
  2. CISPLATIN [Suspect]
     Indication: NON-SMALL CELL LUNG CANCER STAGE IV
     Dosage: 138 MG, 21 DAYS/CYLE
     Route: 042
     Dates: start: 20110701
  3. DIGOXIN                            /00545901/ [Concomitant]
     Dosage: UNK
     Dates: start: 20111005
  4. CLEXANE [Concomitant]
     Dosage: UNK
  5. VENLAFAXINE [Concomitant]
     Dosage: UNK
  6. OMEPRAZOLE [Concomitant]
     Dosage: UNK
  7. PARACETAMOL [Concomitant]
     Dosage: UNK
  8. MAGMIN [Concomitant]
     Dosage: UNK
  9. PHOSPHATE-SANDOZ [Concomitant]
     Dosage: UNK
  10. SLOW K [Concomitant]
     Dosage: UNK
  11. METOPROLOL                         /00376902/ [Concomitant]
     Dosage: UNK
     Dates: end: 20110930
  12. GTN [Concomitant]
     Dosage: UNK
     Dates: end: 20110927

REACTIONS (1)
  - Orthostatic hypotension [Recovered/Resolved with Sequelae]
